FAERS Safety Report 4438404-3 (Version None)
Quarter: 2004Q3

REPORT INFORMATION
  Report Type: 
  Country: None (occurrence: None)
  Receive Date: 20040831
  Receipt Date: 20040827
  Transmission Date: 20050211
  Serious: Yes (Hospitalization)
  Sender: FDA-Public Use
  Company Number: PHBS2004DO11396

PATIENT
  Age: 52 Year
  Sex: Male

DRUGS (1)
  1. ZELMAC [Suspect]
     Indication: IRRITABLE BOWEL SYNDROME
     Dosage: 6 MG, BID
     Route: 048
     Dates: start: 20040601

REACTIONS (3)
  - DIARRHOEA [None]
  - HYPERHIDROSIS [None]
  - HYPOTENSION [None]
